FAERS Safety Report 17267451 (Version 2)
Quarter: 2020Q1

REPORT INFORMATION
  Report Type: Spontaneous
  Country: US (occurrence: US)
  Receive Date: 20200114
  Receipt Date: 20200121
  Transmission Date: 20200409
  Serious: No
  Sender: FDA-Public Use
  Company Number: US-SA-2020SA009069

PATIENT
  Sex: Male

DRUGS (2)
  1. NASACORT [Suspect]
     Active Substance: TRIAMCINOLONE ACETONIDE
     Indication: SINUSITIS
     Dosage: HE USUALLY TAKES ONE SHOT EVERY NOSTRIL AT NIGHT
     Route: 045
  2. NASACORT [Suspect]
     Active Substance: TRIAMCINOLONE ACETONIDE
     Dosage: 2 IN EACH NOSTRIL IN THE MORNING AND AT NIGHT.
     Route: 045

REACTIONS (3)
  - Dizziness [Unknown]
  - Feeling abnormal [Unknown]
  - Extra dose administered [Unknown]
